FAERS Safety Report 7532050-0 (Version None)
Quarter: 2011Q2

REPORT INFORMATION
  Report Type: 
  Country: None (occurrence: None)
  Receive Date: 20110608
  Receipt Date: 20110530
  Transmission Date: 20111010
  Serious: Yes (Hospitalization)
  Sender: FDA-Public Use
  Company Number: JP-ABBOTT-11P-087-0714061-00

PATIENT
  Age: 34 Year
  Sex: Male
  Weight: 63.6 kg

DRUGS (11)
  1. HUMIRA [Suspect]
     Dates: start: 20110414
  2. RABEPRAZOLE SODIUM [Concomitant]
     Indication: REFLUX OESOPHAGITIS
     Route: 048
     Dates: start: 20080826
  3. KETOPROFEN [Concomitant]
     Indication: BACK PAIN
     Route: 061
     Dates: start: 20090318
  4. MERCAPTOPURINE HYDRATE [Concomitant]
     Indication: CROHN'S DISEASE
     Dates: start: 20101013, end: 20101223
  5. ETIZOLAM [Concomitant]
     Indication: INSOMNIA
     Route: 048
     Dates: start: 20100317
  6. HUMIRA [Suspect]
     Indication: CROHN'S DISEASE
     Route: 058
     Dates: start: 20101216, end: 20101216
  7. EPINASTINE HYDROCHLORIDE [Concomitant]
     Indication: DERMATITIS ATOPIC
     Route: 048
     Dates: start: 20050615
  8. HUMIRA [Suspect]
     Route: 058
     Dates: start: 20101230, end: 20101230
  9. HUMIRA [Suspect]
     Route: 058
     Dates: start: 20110113, end: 20110413
  10. TPN [Concomitant]
     Indication: CROHN'S DISEASE
     Route: 048
  11. COLIBACILLUS VACCINE [Concomitant]
     Indication: ANAL FISTULA
     Route: 061
     Dates: start: 20110223

REACTIONS (8)
  - HYPOKALAEMIA [None]
  - HEPATIC FUNCTION ABNORMAL [None]
  - PYREXIA [None]
  - MYALGIA [None]
  - DRUG EFFECT DECREASED [None]
  - CROHN'S DISEASE [None]
  - BLOOD CREATINE PHOSPHOKINASE INCREASED [None]
  - MALAISE [None]
